FAERS Safety Report 4901216-8 (Version None)
Quarter: 2006Q1

REPORT INFORMATION
  Report Type: 
  Country: None (occurrence: None)
  Receive Date: 20060201
  Receipt Date: 20060123
  Transmission Date: 20060701
  Serious: Yes (Hospitalization)
  Sender: FDA-Public Use
  Company Number: 2005042086

PATIENT
  Age: 56 Year
  Sex: Male

DRUGS (11)
  1. VIRACEPT [Suspect]
     Indication: HIV INFECTION
     Dosage: ORAL
     Route: 048
     Dates: start: 20030425
  2. EFAVIRENZ [Suspect]
     Indication: HIV INFECTION
     Dosage: 600 MG (1 IN 1 D), ORAL
     Route: 048
     Dates: start: 20020716
  3. TENOFOVIR (TENOFOVIR) [Suspect]
     Indication: HIV INFECTION
     Dosage: 300 MG (INTERVAL: EVERY DAY), ORAL
     Route: 048
     Dates: start: 20030409
  4. DIDANOSINE [Suspect]
     Indication: HIV INFECTION
     Dosage: 400 MG (1 IN 1 D), ORAL
     Route: 048
     Dates: start: 20020716, end: 20030409
  5. LAMIVUDINE [Suspect]
     Indication: HIV INFECTION
     Dosage: 300 MG (150 MG, 2 IN 1 D), ORAL
     Route: 048
     Dates: start: 20010406, end: 20030409
  6. ABACAVIR [Suspect]
     Indication: HIV INFECTION
     Dosage: 600 MG (1 IN 1 D), ORAL
     Route: 048
     Dates: start: 20010406, end: 20030409
  7. KALETRA [Suspect]
     Indication: HIV INFECTION
     Dosage: ORAL
     Route: 048
     Dates: start: 20020513, end: 20020715
  8. DIGESTIVES, INCL ENZYMES (DIGESTIVES, INCL ENZYMES) [Concomitant]
  9. VIREAD [Concomitant]
  10. ALL OTHER THERAPEUTIC PRODUCTS (ALL OTHER THERAPEUTIC PRODUCTS) [Concomitant]
  11. BACTRIM [Concomitant]

REACTIONS (9)
  - ARRHYTHMIA [None]
  - ATRIOVENTRICULAR EXTRASYSTOLES [None]
  - CHEST DISCOMFORT [None]
  - ELECTROCARDIOGRAM R ON T PHENOMENON [None]
  - EXTRASYSTOLES [None]
  - HEADACHE [None]
  - SICK SINUS SYNDROME [None]
  - SUPRAVENTRICULAR EXTRASYSTOLES [None]
  - VENTRICULAR EXTRASYSTOLES [None]
